FAERS Safety Report 8255437-X (Version None)
Quarter: 2012Q2

REPORT INFORMATION
  Report Type: 
  Country: None (occurrence: None)
  Receive Date: 20120403
  Receipt Date: 20120322
  Transmission Date: 20120825
  Serious: Yes (Other)
  Sender: FDA-Public Use
  Company Number: US-SANOFI-AVENTIS-2012SA020278

PATIENT
  Sex: Female

DRUGS (1)
  1. ALLEGRA-D 12 HOUR [Suspect]
     Route: 048
     Dates: start: 20120301, end: 20120301

REACTIONS (4)
  - DIZZINESS [None]
  - PANIC ATTACK [None]
  - ABDOMINAL DISTENSION [None]
  - FLATULENCE [None]
